FAERS Safety Report 6294671-5 (Version None)
Quarter: 2009Q3

REPORT INFORMATION
  Report Type: 
  Country: None (occurrence: None)
  Receive Date: 20090803
  Receipt Date: 20090721
  Transmission Date: 20100115
  Serious: Yes (Hospitalization, Other)
  Sender: FDA-Public Use
  Company Number: A0718446A

PATIENT
  Age: 49 Year
  Sex: Male
  Weight: 186.4 kg

DRUGS (10)
  1. AVANDIA [Suspect]
     Dosage: 4MG TWICE PER DAY
     Route: 065
     Dates: start: 20050221, end: 20070401
  2. AVANDAMET [Suspect]
     Dates: start: 20050221, end: 20070401
  3. AVANDARYL [Suspect]
     Dates: start: 20050221, end: 20070401
  4. GLUCOPHAGE [Concomitant]
     Dates: start: 20030901, end: 20070301
  5. METFORMIN [Concomitant]
     Dates: start: 20030601, end: 20070401
  6. LANTUS [Concomitant]
     Dates: start: 20050617, end: 20070601
  7. GLUCOTROL XL [Concomitant]
     Dates: start: 20030601, end: 20050301
  8. AMARYL [Concomitant]
     Dates: start: 20070318, end: 20070501
  9. COREG [Concomitant]
     Dates: start: 20031201, end: 20070401
  10. MEDROL [Concomitant]
     Dates: start: 20060128, end: 20060201

REACTIONS (6)
  - ACTIVITIES OF DAILY LIVING IMPAIRED [None]
  - CARDIAC FAILURE CONGESTIVE [None]
  - DYSPNOEA [None]
  - HYPERTENSION [None]
  - LUNG DISORDER [None]
  - MYOCARDIAL INFARCTION [None]
